FAERS Safety Report 9352077 (Version 1)
Quarter: 2013Q2

REPORT INFORMATION
  Report Type: Spontaneous
  Country: ES (occurrence: ES)
  Receive Date: 20130617
  Receipt Date: 20130617
  Transmission Date: 20140414
  Serious: Yes (Hospitalization, Other)
  Sender: FDA-Public Use
  Company Number: ES-BRISTOL-MYERS SQUIBB COMPANY-18964007

PATIENT
  Age: 52 Year
  Sex: Male

DRUGS (7)
  1. REYATAZ [Suspect]
     Indication: HIV INFECTION
     Dosage: 1DF=300/100MG .QD
     Dates: start: 2008
  2. TENOFOVIR DISOPROXIL FUMARATE [Suspect]
     Indication: HIV INFECTION
     Dosage: 1DF=300/100MG .QD
     Dates: start: 2008
  3. RITONAVIR [Suspect]
  4. EMTRICITABINE [Suspect]
     Indication: HIV INFECTION
     Dosage: 1DF=300/100MG .QD
     Dates: start: 2008
  5. TELAPREVIR [Concomitant]
     Dates: start: 20130128
  6. RIBAVIRIN [Concomitant]
     Dates: start: 20130128
  7. PEG-IFN [Concomitant]
     Dates: start: 20130128

REACTIONS (3)
  - Pyelonephritis acute [Unknown]
  - Renal failure [Unknown]
  - Nephrocalcinosis [Unknown]
